FAERS Safety Report 19429759 (Version 1)
Quarter: 2021Q2

REPORT INFORMATION
  Report Type: Report from Study
  Country: US (occurrence: US)
  Receive Date: 20210617
  Receipt Date: 20210617
  Transmission Date: 20210717
  Serious: Yes (Other)
  Sender: FDA-Public Use
  Company Number: US-JNJFOC-20210621711

PATIENT

DRUGS (4)
  1. GUSELKUMAB [Concomitant]
     Active Substance: GUSELKUMAB
     Indication: PRODUCT USED FOR UNKNOWN INDICATION
  2. SIMPONI [Suspect]
     Active Substance: GOLIMUMAB
     Indication: HIDRADENITIS
     Dosage: ADMINISTRATION IN THIS SERIES WAS MOSTLY INTRAVENOUS
     Route: 042
  3. METHOTREXATE. [Concomitant]
     Active Substance: METHOTREXATE
     Indication: PRODUCT USED FOR UNKNOWN INDICATION
  4. REMICADE [Suspect]
     Active Substance: INFLIXIMAB
     Indication: HIDRADENITIS
     Route: 042

REACTIONS (5)
  - Oral pruritus [Unknown]
  - Clostridium difficile colitis [Unknown]
  - Product use in unapproved indication [Unknown]
  - Off label use [Unknown]
  - Therapy non-responder [Unknown]
